FAERS Safety Report 5205094-1 (Version None)
Quarter: 2007Q1

REPORT INFORMATION
  Report Type: 
  Country: None (occurrence: None)
  Receive Date: 20070110
  Receipt Date: 20061027
  Transmission Date: 20070707
  Serious: No
  Sender: FDA-Public Use
  Company Number: US-BRISTOL-MYERS SQUIBB COMPANY-13558796

PATIENT
  Age: 68 Year
  Sex: Female
  Weight: 77 kg

DRUGS (7)
  1. ABILIFY [Suspect]
     Indication: BIPOLAR DISORDER
     Dosage: STARTED ON DOSE OF 5 MG DAILY PO
     Route: 048
  2. KLONOPIN [Concomitant]
  3. PREVACID [Concomitant]
  4. SYNTHROID [Concomitant]
  5. OXYBUTYNIN [Concomitant]
  6. PREMARIN [Concomitant]
  7. PENTAZOCINE LACTATE [Concomitant]

REACTIONS (7)
  - ABDOMINAL PAIN UPPER [None]
  - ANXIETY [None]
  - BLOOD PRESSURE INCREASED [None]
  - CHEST PAIN [None]
  - INSOMNIA [None]
  - RESTLESSNESS [None]
  - VISION BLURRED [None]
